FAERS Safety Report 19435691 (Version 1)
Quarter: 2021Q2

REPORT INFORMATION
  Report Type: Spontaneous
  Country: US (occurrence: US)
  Receive Date: 20210618
  Receipt Date: 20210618
  Transmission Date: 20210717
  Serious: No
  Sender: FDA-Public Use
  Company Number: US-NEUROCRINE BIOSCIENCES INC.-2021NBI02911

PATIENT

DRUGS (2)
  1. ONGENTYS [Suspect]
     Active Substance: OPICAPONE
     Indication: PARKINSON^S DISEASE
     Dosage: 50 MILLIGRAM EVERY OTHER DAY
     Route: 048
     Dates: start: 20210526
  2. SINEMET [Concomitant]
     Active Substance: CARBIDOPA\LEVODOPA
     Dosage: 3 TIMES DAILY

REACTIONS (2)
  - Gastrointestinal disorder [Unknown]
  - Vomiting [Unknown]

NARRATIVE: CASE EVENT DATE: 20210527
